FAERS Safety Report 24691250 (Version 1)
Quarter: 2024Q4

REPORT INFORMATION
  Report Type: Spontaneous
  Country: US (occurrence: None)
  Receive Date: 20241202
  Receipt Date: 20241202
  Transmission Date: 20250114
  Serious: Yes (Other)
  Sender: Public
  Company Number: None

PATIENT
  Age: 64 Year
  Sex: Male
  Weight: 52.2 kg

DRUGS (17)
  1. DEFINITY [Suspect]
     Active Substance: PERFLUTREN
     Indication: Echocardiogram
     Dosage: FREQUENCY : AS NEEDED;?
     Route: 042
     Dates: start: 20241128, end: 20241128
  2. ALBUTEROL [Concomitant]
     Active Substance: ALBUTEROL
  3. multivit-minerals/folic acid [Concomitant]
  4. SUCRALFATE [Concomitant]
     Active Substance: SUCRALFATE
  5. ROFLUMILAST [Concomitant]
     Active Substance: ROFLUMILAST
  6. ROSUVASTATIN [Concomitant]
     Active Substance: ROSUVASTATIN
  7. budesonide-glycopyr-formoterol [Concomitant]
  8. FERROUS SULFATE [Concomitant]
     Active Substance: FERROUS SULFATE
  9. PANTOPRAZOLE [Concomitant]
     Active Substance: PANTOPRAZOLE
  10. BUPROPION [Concomitant]
     Active Substance: BUPROPION
  11. CHOLECALCIFEROL [Concomitant]
     Active Substance: CHOLECALCIFEROL
  12. VITAMIN D3 [Concomitant]
     Active Substance: CHOLECALCIFEROL
  13. CYANOCOBALAMIN [Concomitant]
     Active Substance: CYANOCOBALAMIN
  14. VITAMIN B12 [Concomitant]
     Active Substance: CYANOCOBALAMIN
  15. CARVEDILOL [Concomitant]
     Active Substance: CARVEDILOL
  16. NIFEDIPINE [Concomitant]
     Active Substance: NIFEDIPINE
  17. URSODIOL [Concomitant]
     Active Substance: URSODIOL

REACTIONS (2)
  - Back pain [None]
  - Contrast media reaction [None]

NARRATIVE: CASE EVENT DATE: 20241128
